FAERS Safety Report 19241556 (Version 1)
Quarter: 2021Q2

REPORT INFORMATION
  Report Type: Spontaneous
  Country: FR (occurrence: FR)
  Receive Date: 20210511
  Receipt Date: 20210511
  Transmission Date: 20210717
  Serious: Yes (Hospitalization)
  Sender: FDA-Public Use
  Company Number: FR-B.I. PHARMACEUTICALS,INC./RIDGEFIELD-2021-BI-101231

PATIENT
  Age: 70 Year
  Sex: Male
  Weight: 125 kg

DRUGS (8)
  1. VANCOMYCINE [VANCOMYCIN] [Suspect]
     Active Substance: VANCOMYCIN
     Indication: UPPER AERODIGESTIVE TRACT INFECTION
     Route: 042
     Dates: start: 20210309, end: 20210311
  2. CASPOFUNGINE [CASPOFUNGIN] [Suspect]
     Active Substance: CASPOFUNGIN
     Indication: FUNGAL INFECTION
     Route: 042
     Dates: start: 20210310, end: 20210311
  3. CILASTATINE [Suspect]
     Active Substance: CILASTATIN
     Indication: UPPER AERODIGESTIVE TRACT INFECTION
     Route: 042
     Dates: start: 20210309, end: 20210311
  4. NORADRENALINE [NOREPINEPHRINE] [Concomitant]
     Active Substance: NOREPINEPHRINE
     Indication: PRODUCT USED FOR UNKNOWN INDICATION
  5. CATAPRESSAN [Suspect]
     Active Substance: CLONIDINE
     Indication: HYPERTENSION
     Dates: start: 20210309, end: 20210310
  6. HEPARINE SODIQUE [Concomitant]
     Active Substance: HEPARIN SODIUM
     Indication: PRODUCT USED FOR UNKNOWN INDICATION
  7. PANTOPRAZOLE [Concomitant]
     Active Substance: PANTOPRAZOLE
     Indication: PRODUCT USED FOR UNKNOWN INDICATION
  8. PERFALGAN [Concomitant]
     Active Substance: ACETAMINOPHEN
     Indication: PRODUCT USED FOR UNKNOWN INDICATION

REACTIONS (2)
  - Eosinophilia [Recovered/Resolved]
  - Cutaneous vasculitis [Recovered/Resolved]

NARRATIVE: CASE EVENT DATE: 20210310
